FAERS Safety Report 8793231 (Version 40)
Quarter: 2018Q3

REPORT INFORMATION
  Report Type: Report from Study
  Country: CA (occurrence: CA)
  Receive Date: 20120917
  Receipt Date: 20180814
  Transmission Date: 20181010
  Serious: Yes (Hospitalization, Other)
  Sender: FDA-Public Use
  Company Number: CA-ROCHE-1115935

PATIENT
  Age: 82 Year
  Sex: Female
  Weight: 90 kg

DRUGS (15)
  1. PANTOLOC [Concomitant]
     Active Substance: PANTOPRAZOLE SODIUM
  2. CORTISONE [Concomitant]
     Active Substance: CORTISONE\HYDROCORTISONE
  3. RESOTRAN [Concomitant]
     Active Substance: PRUCALOPRIDE SUCCINATE
     Route: 065
     Dates: start: 201306
  4. ATENOLOL. [Concomitant]
     Active Substance: ATENOLOL
  5. VITAMIN B6 [Concomitant]
     Active Substance: PYRIDOXINE HYDROCHLORIDE
  6. ACTEMRA [Suspect]
     Active Substance: TOCILIZUMAB
     Indication: RHEUMATOID ARTHRITIS
     Route: 042
     Dates: start: 20110110
  7. AMITRIPTYLINE [Concomitant]
     Active Substance: AMITRIPTYLINE
  8. FUROSEMIDE. [Concomitant]
     Active Substance: FUROSEMIDE
  9. ZOPICLONE [Concomitant]
     Active Substance: ZOPICLONE
  10. PREDNISONE. [Concomitant]
     Active Substance: PREDNISONE
  11. ACTEMRA [Suspect]
     Active Substance: TOCILIZUMAB
     Route: 042
     Dates: start: 20150224
  12. TRIAZIDE [Concomitant]
  13. VITAMIN B12 [Concomitant]
     Active Substance: CYANOCOBALAMIN
  14. CONSTELLA [Concomitant]
     Active Substance: LINACLOTIDE
     Indication: IRRITABLE BOWEL SYNDROME
     Route: 065
     Dates: start: 201406
  15. TRAMADOL. [Concomitant]
     Active Substance: TRAMADOL

REACTIONS (66)
  - Infusion related reaction [Unknown]
  - Peripheral swelling [Not Recovered/Not Resolved]
  - Hypertension [Unknown]
  - Electrolyte imbalance [Unknown]
  - Cold type haemolytic anaemia [Unknown]
  - Vomiting [Recovered/Resolved]
  - Oedema peripheral [Not Recovered/Not Resolved]
  - Eye infection [Recovering/Resolving]
  - Oropharyngeal pain [Recovering/Resolving]
  - Pain in extremity [Not Recovered/Not Resolved]
  - Muscle rupture [Not Recovered/Not Resolved]
  - Abdominal pain upper [Not Recovered/Not Resolved]
  - Pain [Unknown]
  - Bronchitis [Not Recovered/Not Resolved]
  - Peripheral swelling [Recovering/Resolving]
  - Spinal column stenosis [Not Recovered/Not Resolved]
  - Septic shock [Unknown]
  - Abdominal pain [Recovered/Resolved]
  - Constipation [Unknown]
  - Joint range of motion decreased [Not Recovered/Not Resolved]
  - Cough [Not Recovered/Not Resolved]
  - Heart rate increased [Recovering/Resolving]
  - Blood pressure increased [Unknown]
  - Lower respiratory tract infection [Recovered/Resolved]
  - Tinnitus [Unknown]
  - Tympanic membrane disorder [Unknown]
  - Blood urine present [Unknown]
  - Gastric disorder [Unknown]
  - Musculoskeletal pain [Not Recovered/Not Resolved]
  - Eye disorder [Not Recovered/Not Resolved]
  - Device material opacification [Unknown]
  - Neck pain [Not Recovered/Not Resolved]
  - Joint swelling [Recovering/Resolving]
  - Hypoacusis [Not Recovered/Not Resolved]
  - Viral infection [Recovered/Resolved]
  - Wrist fracture [Not Recovered/Not Resolved]
  - Clostridium difficile infection [Recovered/Resolved]
  - Loss of consciousness [Recovered/Resolved]
  - Fatigue [Recovered/Resolved]
  - Back pain [Recovering/Resolving]
  - Headache [Recovering/Resolving]
  - Fall [Unknown]
  - Cystitis [Recovered/Resolved]
  - Nasopharyngitis [Not Recovered/Not Resolved]
  - Nausea [Recovered/Resolved]
  - Arthropod sting [Recovering/Resolving]
  - Hypotension [Unknown]
  - Rash [Recovered/Resolved]
  - Upper respiratory tract infection [Not Recovered/Not Resolved]
  - Purpura [Unknown]
  - Urinary tract infection [Recovered/Resolved]
  - Musculoskeletal pain [Recovering/Resolving]
  - Joint injury [Not Recovered/Not Resolved]
  - Pneumonia [Recovered/Resolved]
  - Dizziness [Recovered/Resolved]
  - Malaise [Not Recovered/Not Resolved]
  - Platelet count decreased [Not Recovered/Not Resolved]
  - Blood potassium decreased [Unknown]
  - Pain [Recovering/Resolving]
  - Nasopharyngitis [Unknown]
  - Arthralgia [Recovering/Resolving]
  - Bursitis [Not Recovered/Not Resolved]
  - Diarrhoea [Unknown]
  - Dehydration [Unknown]
  - Abdominal distension [Recovering/Resolving]
  - Oral candidiasis [Not Recovered/Not Resolved]

NARRATIVE: CASE EVENT DATE: 2012
